FAERS Safety Report 15122661 (Version 4)
Quarter: 2018Q4

REPORT INFORMATION
  Report Type: Report from Study
  Country: PL (occurrence: PL)
  Receive Date: 20180709
  Receipt Date: 20181004
  Transmission Date: 20190204
  Serious: Yes (Other)
  Sender: FDA-Public Use
  Company Number: PL-PFIZER INC-2018272027

PATIENT

DRUGS (3)
  1. CELECOXIB. [Suspect]
     Active Substance: CELECOXIB
     Dosage: 400 MG, DAILY
  2. METOCLOPRAMIDE. [Interacting]
     Active Substance: METOCLOPRAMIDE
     Dosage: 30 MG, DAILY
  3. TRAMADOL. [Interacting]
     Active Substance: TRAMADOL
     Indication: CANCER PAIN
     Dosage: 200 MG, DAILY

REACTIONS (2)
  - Serotonin syndrome [Unknown]
  - Drug interaction [Unknown]
